FAERS Safety Report 11977366 (Version 2)
Quarter: 2016Q1

REPORT INFORMATION
  Report Type: Spontaneous
  Country: DE (occurrence: DE)
  Receive Date: 20160129
  Receipt Date: 20160203
  Transmission Date: 20160526
  Serious: Yes (Other)
  Sender: FDA-Public Use
  Company Number: DE-PFIZER INC-2016044394

PATIENT
  Age: 66 Year
  Sex: Female

DRUGS (1)
  1. LATANOPROST PFIZER [Suspect]
     Active Substance: LATANOPROST
     Dosage: UNK

REACTIONS (8)
  - Drug intolerance [Unknown]
  - Ocular hyperaemia [Unknown]
  - Dyspnoea [Unknown]
  - Eye pain [Unknown]
  - Nerve root compression [Unknown]
  - Rash [Unknown]
  - Headache [Unknown]
  - Epstein-Barr viraemia [Unknown]

NARRATIVE: CASE EVENT DATE: 2014
